FAERS Safety Report 6378696-7 (Version None)
Quarter: 2009Q3

REPORT INFORMATION
  Report Type: 
  Country: None (occurrence: None)
  Receive Date: 20090928
  Receipt Date: 20090918
  Transmission Date: 20100115
  Serious: Yes (Other)
  Sender: FDA-Public Use
  Company Number: CN-ASTRAZENECA-2009SE14120

PATIENT
  Sex: Female

DRUGS (3)
  1. IRESSA [Suspect]
     Indication: NON-SMALL CELL LUNG CANCER
     Route: 048
     Dates: start: 20090301, end: 20090901
  2. HERBAL [Concomitant]
     Route: 048
  3. WARFARIN [Concomitant]
     Indication: ANTICOAGULANT THERAPY
     Route: 048
     Dates: start: 20090301

REACTIONS (1)
  - GASTROINTESTINAL HAEMORRHAGE [None]
